FAERS Safety Report 10249258 (Version 1)
Quarter: 2014Q2

REPORT INFORMATION
  Report Type: Spontaneous
  Country: FR (occurrence: FR)
  Receive Date: 20140620
  Receipt Date: 20140620
  Transmission Date: 20141212
  Serious: Yes (Disabling)
  Sender: FDA-Public Use
  Company Number: FR-ABBVIE-14K-056-1249847-00

PATIENT
  Age: 65 Year
  Sex: Male

DRUGS (3)
  1. DEPAKOTE [Suspect]
     Indication: BIPOLAR DISORDER
     Route: 048
     Dates: end: 201405
  2. RISPERIDONE [Suspect]
     Indication: BIPOLAR DISORDER
     Dates: end: 201310
  3. RISPERIDONE [Suspect]
     Dates: start: 201310, end: 201310

REACTIONS (4)
  - Fall [Unknown]
  - Dementia [Unknown]
  - Parkinsonism [Unknown]
  - Dyskinesia [Unknown]
